FAERS Safety Report 11779408 (Version 1)
Quarter: 2015Q4

REPORT INFORMATION
  Report Type: Spontaneous
  Country: FR (occurrence: FR)
  Receive Date: 20151125
  Receipt Date: 20151125
  Transmission Date: 20160304
  Serious: Yes (Hospitalization, Other)
  Sender: FDA-Public Use
  Company Number: FR-PFIZER INC-2015402632

PATIENT
  Age: 49 Year
  Sex: Female

DRUGS (4)
  1. TOPREC [Suspect]
     Active Substance: KETOPROFEN
     Indication: TOOTHACHE
     Dosage: UNK
     Route: 048
     Dates: start: 20150820, end: 20150821
  2. ZITHROMAX [Suspect]
     Active Substance: AZITHROMYCIN DIHYDRATE
     Indication: TOOTHACHE
     Dosage: UNK
     Route: 048
     Dates: start: 20150819, end: 20150820
  3. FLAGYL [Suspect]
     Active Substance: METRONIDAZOLE\METRONIDAZOLE HYDROCHLORIDE
     Indication: TOOTHACHE
     Dosage: UNK
     Route: 048
     Dates: start: 20150820, end: 20150821
  4. KLIPAL /00116401/ [Suspect]
     Active Substance: ACETAMINOPHEN\CODEINE PHOSPHATE
     Indication: TOOTHACHE
     Dosage: UNK
     Route: 048
     Dates: start: 20150820, end: 20150821

REACTIONS (2)
  - Drug ineffective for unapproved indication [Unknown]
  - Cellulitis [Recovered/Resolved]

NARRATIVE: CASE EVENT DATE: 20150821
